FAERS Safety Report 19427809 (Version 1)
Quarter: 2021Q2

REPORT INFORMATION
  Report Type: Spontaneous
  Country: JP (occurrence: JP)
  Receive Date: 20210616
  Receipt Date: 20210616
  Transmission Date: 20210717
  Serious: Yes (Death)
  Sender: FDA-Public Use
  Company Number: JP-GILEAD-2021-0535516

PATIENT
  Age: 81 Year
  Sex: Female

DRUGS (10)
  1. VEKLURY [Suspect]
     Active Substance: REMDESIVIR
     Indication: COVID-19
     Dosage: 200 MG
     Route: 041
     Dates: start: 20210513, end: 20210513
  2. FUROSEMIDE. [Concomitant]
     Active Substance: FUROSEMIDE
  3. THYRADIN [Concomitant]
     Active Substance: LEVOTHYROXINE
  4. AVIGAN [Concomitant]
     Active Substance: FAVIPIRAVIR
     Dosage: 1800 MG, BID
     Route: 065
     Dates: start: 20210510, end: 20210510
  5. AVIGAN [Concomitant]
     Active Substance: FAVIPIRAVIR
     Dosage: 800 MG, BID
     Route: 065
     Dates: start: 20210511
  6. ALLOPURINOL. [Concomitant]
     Active Substance: ALLOPURINOL
  7. DEPAKENE [VALPROATE SODIUM] [Concomitant]
     Active Substance: VALPROATE SODIUM
  8. GENINAX [Concomitant]
     Active Substance: GARENOXACIN MESYLATE
  9. JANUVIA [Concomitant]
     Active Substance: SITAGLIPTIN PHOSPHATE
  10. VEKLURY [Suspect]
     Active Substance: REMDESIVIR
     Dosage: 100 MG
     Route: 041
     Dates: start: 20210514, end: 20210522

REACTIONS (1)
  - COVID-19 [Fatal]

NARRATIVE: CASE EVENT DATE: 20210523
